FAERS Safety Report 9208285 (Version 2)
Quarter: 2013Q2

REPORT INFORMATION
  Report Type: Spontaneous
  Country: US (occurrence: US)
  Receive Date: 20130403
  Receipt Date: 20130429
  Transmission Date: 20140414
  Serious: Yes (Hospitalization, Other)
  Sender: FDA-Public Use
  Company Number: US-B.I. PHARMACEUTICALS,INC./RIDGEFIELD-2013-BI-08669BP

PATIENT
  Sex: Female
  Weight: 74.39 kg

DRUGS (3)
  1. SPIRIVA [Suspect]
     Indication: BRONCHITIS CHRONIC
     Dosage: 18 MCG
     Route: 055
     Dates: start: 2005
  2. SPIRIVA [Suspect]
     Indication: CHRONIC OBSTRUCTIVE PULMONARY DISEASE
  3. SPIRIVA [Suspect]
     Indication: ASTHMA

REACTIONS (9)
  - Arthritis [Recovered/Resolved]
  - Arthritis [Recovered/Resolved]
  - Carpal tunnel syndrome [Recovered/Resolved]
  - Intervertebral disc protrusion [Recovered/Resolved]
  - Rotator cuff syndrome [Recovered/Resolved]
  - Arthritis [Recovered/Resolved]
  - Mitral valve incompetence [Not Recovered/Not Resolved]
  - Road traffic accident [Recovered/Resolved]
  - Aortic valve incompetence [Not Recovered/Not Resolved]
